FAERS Safety Report 26101199 (Version 1)
Quarter: 2025Q4

REPORT INFORMATION
  Report Type: Report from Study
  Country: CA (occurrence: CA)
  Receive Date: 20251128
  Receipt Date: 20251128
  Transmission Date: 20260117
  Serious: Yes (Hospitalization, Other)
  Sender: ABBVIE
  Company Number: CA-ABBVIE-6567080

PATIENT
  Sex: Male

DRUGS (1)
  1. LUPRON [Suspect]
     Active Substance: LEUPROLIDE ACETATE
     Indication: Prostate cancer
     Dosage: FORM STRENGTH: 22.5 MILLIGRAMS
     Route: 065
     Dates: start: 20200416, end: 20210104

REACTIONS (4)
  - Fall [Unknown]
  - Weight decreased [Unknown]
  - Head injury [Unknown]
  - Dementia Alzheimer^s type [Unknown]
